FAERS Safety Report 9391964 (Version 2)
Quarter: 2013Q3

REPORT INFORMATION
  Report Type: Spontaneous
  Country: FR (occurrence: FR)
  Receive Date: 20130709
  Receipt Date: 20130723
  Transmission Date: 20140515
  Serious: Yes (Hospitalization)
  Sender: FDA-Public Use
  Company Number: FR-009507513-1307FRA000943

PATIENT
  Age: 62 Year
  Sex: Male

DRUGS (3)
  1. FOSAVANCE [Suspect]
     Indication: OSTEOPOROSIS
     Dosage: 1 DF, QW
     Route: 048
  2. ARIXTRA [Suspect]
     Indication: DEEP VEIN THROMBOSIS
     Dosage: 1 DF, QD
     Route: 058
     Dates: start: 20120724, end: 20120729
  3. PREVISCAN [Suspect]
     Indication: DEEP VEIN THROMBOSIS
     Dosage: 1.25 DF, QD
     Route: 048
     Dates: start: 20120724, end: 20120729

REACTIONS (3)
  - Gastrointestinal haemorrhage [Recovered/Resolved]
  - Melaena [Recovered/Resolved]
  - Oesophagitis ulcerative [Recovering/Resolving]
